FAERS Safety Report 14498103 (Version 1)
Quarter: 2018Q1

REPORT INFORMATION
  Report Type: Spontaneous
  Country: US (occurrence: US)
  Receive Date: 20180206
  Receipt Date: 20180206
  Transmission Date: 20180509
  Serious: Yes (Other)
  Sender: FDA-Public Use
  Company Number: None

PATIENT

DRUGS (1)
  1. WARFARIN [Suspect]
     Active Substance: WARFARIN

REACTIONS (7)
  - Dyspnoea [None]
  - Therapy cessation [None]
  - Abdominal pain [None]
  - Haemorrhage [None]
  - Melaena [None]
  - Lethargy [None]
  - Anaemia [None]
